FAERS Safety Report 11328537 (Version 1)
Quarter: 2015Q3

REPORT INFORMATION
  Report Type: Spontaneous
  Country: IT (occurrence: FR)
  Receive Date: 20150731
  Receipt Date: 20150731
  Transmission Date: 20151125
  Serious: Yes (Hospitalization)
  Sender: FDA-Public Use
  Company Number: FR-FRI-1000078682

PATIENT
  Age: 43 Year
  Sex: Female

DRUGS (10)
  1. PREVISCAN [Concomitant]
     Active Substance: FLUINDIONE
     Route: 048
     Dates: start: 2012
  2. VITAMIN A [Concomitant]
     Active Substance: VITAMIN A
     Dates: start: 2013
  3. PARACETAMOL [Suspect]
     Active Substance: ACETAMINOPHEN
     Dosage: 1 DF
     Route: 048
     Dates: start: 20150513
  4. VITAMIN C [Concomitant]
     Active Substance: ASCORBIC ACID
     Dates: start: 2013
  5. VITAMIN D [Concomitant]
     Active Substance: CHOLECALCIFEROL
     Dates: start: 2013
  6. VITAMIN B [Concomitant]
     Active Substance: VITAMIN B
     Dates: start: 2013
  7. VITAMIN E [Concomitant]
     Active Substance: .ALPHA.-TOCOPHEROL
     Dates: start: 2013
  8. IXPRIM [Suspect]
     Active Substance: ACETAMINOPHEN\TRAMADOL HYDROCHLORIDE
     Dosage: 4 DF
     Route: 048
     Dates: start: 20150513
  9. MONUROL [Suspect]
     Active Substance: FOSFOMYCIN TROMETHAMINE
     Dosage: 1 DF
     Route: 048
     Dates: start: 20150525
  10. TRAMADOL BASICS [Suspect]
     Active Substance: TRAMADOL
     Dosage: 2 DF
     Route: 048
     Dates: start: 20150428

REACTIONS (1)
  - Oedematous pancreatitis [Recovering/Resolving]

NARRATIVE: CASE EVENT DATE: 20150526
